FAERS Safety Report 12876588 (Version 1)
Quarter: 2016Q4

REPORT INFORMATION
  Report Type: Spontaneous
  Country: FR (occurrence: FR)
  Receive Date: 20161024
  Receipt Date: 20161024
  Transmission Date: 20170207
  Serious: Yes (Other)
  Sender: FDA-Public Use
  Company Number: FR-PFIZER INC-2016479591

PATIENT
  Age: 67 Year
  Sex: Female

DRUGS (14)
  1. METHYLPREDNISOLONE MYLAN /00049602/ [Suspect]
     Active Substance: METHYLPREDNISOLONE SODIUM SUCCINATE
     Indication: PREMEDICATION
     Dosage: 40 MG, CYCLIC
     Route: 042
     Dates: start: 20160808, end: 20160829
  2. XELODA [Concomitant]
     Active Substance: CAPECITABINE
     Indication: BREAST CANCER METASTATIC
     Dosage: 2 DF, 2X/DAY
     Route: 048
     Dates: start: 20160808
  3. LEVOTHYROX [Concomitant]
     Active Substance: LEVOTHYROXINE
     Dosage: 125 UG, UNK
  4. NEBIVOLOL. [Concomitant]
     Active Substance: NEBIVOLOL
  5. DOCETAXEL. [Suspect]
     Active Substance: DOCETAXEL
     Indication: BREAST CANCER METASTATIC
     Dosage: 134 MG, CYCLIC
     Route: 042
     Dates: start: 20160808, end: 20160829
  6. SOLUPRED /00016201/ [Concomitant]
     Active Substance: PREDNISOLONE
  7. PRIMPERAN [Concomitant]
     Active Substance: METOCLOPRAMIDE HYDROCHLORIDE
     Indication: BREAST CANCER METASTATIC
     Dosage: UNK
  8. POLARAMINE [Concomitant]
     Active Substance: DEXCHLORPHENIRAMINE MALEATE
     Indication: PREMEDICATION
     Dosage: UNK
     Route: 042
     Dates: start: 20160808, end: 20160829
  9. INEXIUM /01479302/ [Concomitant]
     Active Substance: ESOMEPRAZOLE MAGNESIUM
  10. CAPECITABINE. [Concomitant]
     Active Substance: CAPECITABINE
     Indication: BREAST CANCER METASTATIC
  11. IRBESARTAN. [Concomitant]
     Active Substance: IRBESARTAN
  12. AZANTAC [Concomitant]
     Active Substance: RANITIDINE HYDROCHLORIDE
     Indication: PREMEDICATION
     Dosage: 150 MG, CYCLIC
     Route: 042
     Dates: start: 20160808, end: 20160829
  13. DEXERYL /01579901/ [Concomitant]
     Active Substance: GLYCERIN\MINERAL OIL\PARAFFIN
  14. GLYCO THYMOLINE [Concomitant]

REACTIONS (3)
  - Furuncle [Recovered/Resolved]
  - Paronychia [Not Recovered/Not Resolved]
  - Skin exfoliation [Not Recovered/Not Resolved]

NARRATIVE: CASE EVENT DATE: 20160819
